FAERS Safety Report 4299782-1 (Version None)
Quarter: 2004Q1

REPORT INFORMATION
  Report Type: 
  Country: None (occurrence: None)
  Receive Date: 20040126
  Receipt Date: 20031113
  Transmission Date: 20041129
  Serious: No
  Sender: FDA-Public Use
  Company Number: USA031152529

PATIENT
  Age: 3 Year
  Sex: Male

DRUGS (1)
  1. STRATTERA [Suspect]
     Dosage: 18 MG/DAY
     Dates: start: 20031110

REACTIONS (5)
  - EXCITABILITY [None]
  - FEELING HOT [None]
  - FEELING HOT AND COLD [None]
  - NERVOUSNESS [None]
  - SOMNOLENCE [None]
